FAERS Safety Report 6811469-7 (Version None)
Quarter: 2010Q2

REPORT INFORMATION
  Report Type: 
  Country: None (occurrence: None)
  Receive Date: 20100629
  Receipt Date: 20100629
  Transmission Date: 20101027
  Serious: Yes (Other)
  Sender: FDA-Public Use
  Company Number: None

PATIENT
  Age: 63 Year
  Sex: Female
  Weight: 71.6683 kg

DRUGS (1)
  1. JANUVIA [Suspect]
     Indication: TYPE 2 DIABETES MELLITUS
     Dosage: ONE 128.5 MG. TABLET BY MOUTH A DAY BUCCAL
     Dates: start: 20100101, end: 20100501

REACTIONS (3)
  - OEDEMA PERIPHERAL [None]
  - PAIN [None]
  - SWELLING [None]
